FAERS Safety Report 10136867 (Version 2)
Quarter: 2014Q2

REPORT INFORMATION
  Report Type: Spontaneous
  Country: IT (occurrence: None)
  Receive Date: 20140425
  Receipt Date: 20140604
  Transmission Date: 20141212
  Serious: Yes (Other)
  Sender: FDA-Public Use
  Company Number: 2299507

PATIENT
  Age: 78 Year
  Sex: Male

DRUGS (3)
  1. IRINOTECAN HYDROCHLORIDE [Suspect]
     Indication: GASTRIC CANCER
     Route: 042
     Dates: start: 20131106, end: 20140324
  2. CALCIUM LEVOFOLINATE [Concomitant]
  3. FLUOROURACIL TEVA [Concomitant]

REACTIONS (3)
  - Hyperaemia [None]
  - Oedema mucosal [None]
  - Pruritus [None]
